FAERS Safety Report 5104681-9 (Version None)
Quarter: 2006Q3

REPORT INFORMATION
  Report Type: 
  Country: None (occurrence: None)
  Receive Date: 20060912
  Receipt Date: 20060912
  Transmission Date: 20061208
  Serious: Yes (Death)
  Sender: FDA-Public Use
  Company Number: None

PATIENT
  Sex: Male
  Weight: 100.2449 kg

DRUGS (1)
  1. OLANZAPINE [Suspect]
     Indication: ABNORMAL BEHAVIOUR
     Dosage: 7.5 MG TWICE A DAY BY MOUTH

REACTIONS (4)
  - APNOEA [None]
  - CONVULSION [None]
  - RESUSCITATION [None]
  - SKIN DISCOLOURATION [None]
